FAERS Safety Report 18395320 (Version 2)
Quarter: 2020Q4

REPORT INFORMATION
  Report Type: Spontaneous
  Country: FR (occurrence: FR)
  Receive Date: 20201017
  Receipt Date: 20201026
  Transmission Date: 20210114
  Serious: Yes (Other)
  Sender: FDA-Public Use
  Company Number: FR-AUROBINDO-AUR-APL-2020-051985

PATIENT
  Sex: Female

DRUGS (2)
  1. CETIRIZINE ARROW CONSEIL FILM-COATED TABLET 10 MG [Suspect]
     Active Substance: CETIRIZINE HYDROCHLORIDE
     Indication: DERMATITIS ALLERGIC
  2. CETIRIZINE ARROW CONSEIL FILM-COATED TABLET 10 MG [Suspect]
     Active Substance: CETIRIZINE HYDROCHLORIDE
     Indication: FOOD ALLERGY
     Dosage: UNK
     Route: 048

REACTIONS (3)
  - Hypersensitivity [Unknown]
  - Diplegia [Unknown]
  - Product use in unapproved indication [Unknown]

NARRATIVE: CASE EVENT DATE: 2020
